FAERS Safety Report 9254253 (Version 1)
Quarter: 2013Q2

REPORT INFORMATION
  Report Type: Report from Study
  Country: IN (occurrence: IN)
  Receive Date: 20130425
  Receipt Date: 20130425
  Transmission Date: 20140414
  Serious: Yes (Death, Hospitalization)
  Sender: FDA-Public Use
  Company Number: PHHY2013IN040238

PATIENT
  Age: 63 Year
  Sex: Male

DRUGS (1)
  1. RASILEZ [Suspect]
     Indication: HYPERTENSION
     Dosage: 300 MG, DAILY
     Route: 048

REACTIONS (1)
  - Myocardial infarction [Fatal]
